FAERS Safety Report 12282381 (Version 1)
Quarter: 2016Q2

REPORT INFORMATION
  Report Type: Spontaneous
  Country: US (occurrence: US)
  Receive Date: 20160419
  Receipt Date: 20160419
  Transmission Date: 20160815
  Serious: Yes (Other)
  Sender: FDA-Public Use
  Company Number: US-BAYER-2016-068752

PATIENT
  Age: 77 Year
  Sex: Female
  Weight: 54.88 kg

DRUGS (2)
  1. MIRALAX [Suspect]
     Active Substance: POLYETHYLENE GLYCOL 3350
     Indication: CONSTIPATION
     Dosage: ONCE DAILY
     Route: 048
  2. PROBIOTICA [Concomitant]
     Active Substance: PROBIOTICS NOS

REACTIONS (3)
  - Product use issue [None]
  - Off label use [None]
  - Fluid retention [Not Recovered/Not Resolved]

NARRATIVE: CASE EVENT DATE: 2015
